FAERS Safety Report 5464704-4 (Version None)
Quarter: 2007Q3

REPORT INFORMATION
  Report Type: 
  Country: None (occurrence: None)
  Receive Date: 20070921
  Receipt Date: 20070904
  Transmission Date: 20080115
  Serious: Yes (Death, Life-Threatening, Hospitalization)
  Sender: FDA-Public Use
  Company Number: PL-GENENTECH-226260

PATIENT
  Sex: Female
  Weight: 40 kg

DRUGS (13)
  1. RITUXIMAB [Suspect]
     Indication: CHRONIC LYMPHOCYTIC LEUKAEMIA
     Dosage: 705 MG, Q28D
     Route: 042
     Dates: start: 20051012, end: 20060105
  2. FLUDARABINE PHOSPHATE [Suspect]
     Indication: CHRONIC LYMPHOCYTIC LEUKAEMIA
     Dosage: 35 MG, Q28D
     Route: 042
     Dates: start: 20051013, end: 20060105
  3. CYCLOPHOSPHAMIDE [Suspect]
     Indication: CHRONIC LYMPHOCYTIC LEUKAEMIA
     Dosage: 352.5 MG, Q28D
     Route: 042
     Dates: start: 20051013, end: 20060105
  4. COTRIMOXAZOLE [Concomitant]
     Indication: DRUG USE FOR UNKNOWN INDICATION
     Dosage: 960 MG, QD
     Dates: start: 20051013
  5. ACYCLOVIR [Concomitant]
     Indication: DRUG USE FOR UNKNOWN INDICATION
     Dosage: 600 MG, QD
     Dates: start: 20051012
  6. RANITIDINE HYDROCHLORIDE [Concomitant]
     Indication: DRUG USE FOR UNKNOWN INDICATION
     Dosage: 300 MG, QD
     Dates: start: 19940101
  7. MOLSIDOMINE [Concomitant]
     Indication: DRUG USE FOR UNKNOWN INDICATION
     Dosage: 4 MG, QD
     Dates: start: 20020101
  8. ISOSORBIDE MONONITRATE [Concomitant]
     Indication: DRUG USE FOR UNKNOWN INDICATION
     Dosage: 30 MG, QD
     Dates: start: 20060522
  9. TIALORID (POLAND) [Concomitant]
     Indication: DRUG USE FOR UNKNOWN INDICATION
     Dates: start: 20060522
  10. VERAPAMIL HYDROCHLORIDE [Concomitant]
     Indication: DRUG USE FOR UNKNOWN INDICATION
     Dosage: 40 MG, QD
     Dates: start: 20060522
  11. PERINDOPRIL ERBUMINE [Concomitant]
     Indication: DRUG USE FOR UNKNOWN INDICATION
     Dosage: 4 MG, QD
     Dates: start: 20060522
  12. RBC TRANSFUSION [Concomitant]
     Indication: DRUG USE FOR UNKNOWN INDICATION
     Dosage: 2 UNIT, UNK
     Dates: start: 20060609, end: 20060609
  13. ROXITHROMYCIN [Concomitant]
     Indication: DRUG USE FOR UNKNOWN INDICATION
     Dosage: 0.3 G, QD
     Dates: start: 20060529, end: 20060609

REACTIONS (1)
  - PNEUMONIA [None]
